FAERS Safety Report 4827193-6 (Version None)
Quarter: 2005Q4

REPORT INFORMATION
  Report Type: 
  Country: None (occurrence: None)
  Receive Date: 20051014
  Receipt Date: 20050901
  Transmission Date: 20060501
  Serious: No
  Sender: FDA-Public Use
  Company Number: 2005SP002608

PATIENT
  Age: 69 Year
  Sex: Female
  Weight: 53.0709 kg

DRUGS (2)
  1. LUNESTA [Suspect]
     Dosage: 1 + 2 MG ; HS; ORAL
     Route: 048
     Dates: start: 20050801, end: 20050801
  2. LUNESTA [Suspect]
     Dosage: 1 + 2 MG ; HS; ORAL
     Route: 048
     Dates: start: 20050831

REACTIONS (5)
  - ARTHRALGIA [None]
  - DYSGEUSIA [None]
  - JOINT SWELLING [None]
  - NECK MASS [None]
  - SOMNOLENCE [None]
